FAERS Safety Report 4898593-3 (Version None)
Quarter: 2006Q1

REPORT INFORMATION
  Report Type: 
  Country: None (occurrence: None)
  Receive Date: 20060130
  Receipt Date: 20060116
  Transmission Date: 20060701
  Serious: Yes (Hospitalization)
  Sender: FDA-Public Use
  Company Number: 430001M06DEU

PATIENT
  Age: 63 Year
  Sex: Female

DRUGS (1)
  1. MITOXANTRONE [Suspect]
     Indication: MULTIPLE SCLEROSIS
     Dosage: 12 MG/M2

REACTIONS (3)
  - FAECAL INCONTINENCE [None]
  - HAEMATOCHEZIA [None]
  - MUCOUS STOOLS [None]
